FAERS Safety Report 16308858 (Version 1)
Quarter: 2019Q2

REPORT INFORMATION
  Report Type: Spontaneous
  Country: US (occurrence: US)
  Receive Date: 20190514
  Receipt Date: 20190514
  Transmission Date: 20190711
  Serious: No
  Sender: FDA-Public Use
  Company Number: PHEH2019US020242

PATIENT
  Sex: Female

DRUGS (1)
  1. TYKERB [Suspect]
     Active Substance: LAPATINIB DITOSYLATE
     Indication: BRAIN NEOPLASM MALIGNANT
     Dosage: 5 DF, QD(1 HOUR BEFORE OR 2 HOURS AFTER MEALS)
     Route: 048

REACTIONS (3)
  - Pruritus [Unknown]
  - Erythema [Unknown]
  - Product use in unapproved indication [Unknown]
